FAERS Safety Report 25850612 (Version 2)
Quarter: 2025Q4

REPORT INFORMATION
  Report Type: Spontaneous
  Country: JP (occurrence: JP)
  Receive Date: 20250926
  Receipt Date: 20251028
  Transmission Date: 20260117
  Serious: Yes (Other)
  Sender: INSMED
  Company Number: JP-INSMED, INC.-2025-03808-JP

PATIENT
  Age: 7 Decade
  Sex: Female
  Weight: 37 kg

DRUGS (2)
  1. ARIKAYCE [Suspect]
     Active Substance: AMIKACIN
     Indication: Mycobacterium avium complex infection
     Dosage: UNK, UNK
     Route: 055
  2. ARIKAYCE [Suspect]
     Active Substance: AMIKACIN
     Dosage: UNK, TIW
     Route: 055

REACTIONS (8)
  - Dementia [Unknown]
  - Hypersensitivity pneumonitis [Unknown]
  - Pleural effusion [Unknown]
  - Gait disturbance [Unknown]
  - Weight decreased [Recovering/Resolving]
  - Cough [Recovering/Resolving]
  - Off label use [Unknown]
  - Product dose omission issue [Unknown]
